FAERS Safety Report 21058649 (Version 4)
Quarter: 2022Q4

REPORT INFORMATION
  Report Type: Spontaneous
  Country: US (occurrence: US)
  Receive Date: 20220708
  Receipt Date: 20221005
  Transmission Date: 20230112
  Serious: No
  Sender: FDA-Public Use
  Company Number: US-PFIZER INC-202200935349

PATIENT
  Age: 53 Year
  Sex: Female

DRUGS (1)
  1. PAXLOVID [Suspect]
     Active Substance: NIRMATRELVIR\RITONAVIR
     Indication: COVID-19 treatment
     Dosage: 2 RITONAVIR AND 1 NIRMATRELVIR PILLS

REACTIONS (2)
  - Product dispensing issue [Unknown]
  - Incorrect dose administered [Unknown]
